FAERS Safety Report 6309129-4 (Version None)
Quarter: 2009Q3

REPORT INFORMATION
  Report Type: 
  Country: None (occurrence: None)
  Receive Date: 20090812
  Receipt Date: 20090806
  Transmission Date: 20100115
  Serious: Yes (Death)
  Sender: FDA-Public Use
  Company Number: 2007JP004977

PATIENT
  Age: 75 Year
  Sex: Female
  Weight: 49 kg

DRUGS (10)
  1. PROGRAF [Suspect]
     Indication: RHEUMATOID ARTHRITIS
     Dosage: 0.5 MG, /D, ORAL
     Route: 048
     Dates: start: 20061013
  2. PREDNISOLONE TAB [Concomitant]
  3. MOBIC [Concomitant]
  4. RHEUMATREX [Concomitant]
  5. ENALAPRIL MALEATE [Concomitant]
  6. ITOROL (ISOSORBIDE MONONITRATE) TABLET [Concomitant]
  7. LIPOVAS (SIMVASTATIN) TABLET [Concomitant]
  8. MUCOSTA (REBAMIPIDE) TABLET [Concomitant]
  9. LANSOPRAZOLE [Concomitant]
  10. SHAKUYAKUKANZOUTOU (HERBAL EXTRACT NOS) GRANULE [Concomitant]

REACTIONS (2)
  - CHOLECYSTITIS ACUTE [None]
  - SEPSIS [None]
